FAERS Safety Report 8272306-X (Version None)
Quarter: 2012Q2

REPORT INFORMATION
  Report Type: 
  Country: None (occurrence: None)
  Receive Date: 20120410
  Receipt Date: 20120326
  Transmission Date: 20120825
  Serious: Yes (Death, Hospitalization, Other)
  Sender: FDA-Public Use
  Company Number: JP-WATSON-2012-05558

PATIENT
  Age: 75 Year
  Sex: Male

DRUGS (11)
  1. PREDNISOLONE [Suspect]
     Dosage: 5 MG, DAILY
     Route: 065
  2. PREDNISOLONE [Suspect]
     Indication: RHEUMATOID ARTHRITIS
     Dosage: 40 MG, DAILY
     Route: 065
  3. PREDNISOLONE [Suspect]
     Dosage: 30 MG, DAILY
     Route: 065
  4. MICAFUNGIN [Suspect]
     Indication: CRYPTOSPORIDIOSIS INFECTION
     Dosage: 150 MG, DAILY
     Route: 065
  5. SULBACTAM-AMPICILLIN [Suspect]
     Indication: BRONCHITIS
     Dosage: 3 G, BID
     Route: 065
  6. MEROPENEM [Suspect]
     Indication: PSEUDOMONAS INFECTION
     Dosage: 0.5 G, BID
     Route: 065
  7. MEROPENEM [Suspect]
     Indication: PNEUMONIA KLEBSIELLA
  8. PREDNISOLONE [Suspect]
     Dosage: 25 MG, DAILY
     Route: 065
  9. CIPROFLOXACIN HCL [Suspect]
     Indication: PSEUDOMONAS INFECTION
     Dosage: 300 MG, BID
     Route: 065
  10. CIPROFLOXACIN HCL [Suspect]
     Indication: PNEUMONIA KLEBSIELLA
  11. METHOTREXATE [Suspect]
     Indication: RHEUMATOID ARTHRITIS
     Dosage: 10 MG/WEEK
     Route: 065

REACTIONS (1)
  - TRICHOSPORON INFECTION [None]
